FAERS Safety Report 7384644 (Version 6)
Quarter: 2014Q2

REPORT INFORMATION
  Report Type: Spontaneous
  Country: US (occurrence: US)
  Receive Date: 20100512
  Receipt Date: 20140530
  Transmission Date: 20141212
  Serious: Yes (Hospitalization, Disabling, Other)
  Sender: FDA-Public Use
  Company Number: US-BAYER-201021663NA

PATIENT
  Age: 38 Year
  Sex: Female
  Weight: 136 kg

DRUGS (11)
  1. YAZ [Suspect]
     Indication: ORAL CONTRACEPTION
     Dosage: UNK UNK, QD
     Route: 048
     Dates: start: 200708, end: 20080315
  2. YAZ [Suspect]
     Indication: MIGRAINE
  3. YAZ [Suspect]
     Indication: CONVULSION
  4. ZOLPIDEM [Concomitant]
     Indication: SLEEP DISORDER THERAPY
     Dosage: 10 MG, UNK
     Route: 048
  5. LIPITOR [Concomitant]
     Indication: BLOOD CHOLESTEROL INCREASED
     Dosage: 10 MG, UNK
     Route: 048
     Dates: start: 20080320
  6. SYNTHROID [Concomitant]
     Indication: HYPOTHYROIDISM
     Dosage: 0.1 MG, UNK
     Route: 048
     Dates: start: 2000
  7. TOPAMAX [Concomitant]
     Indication: CONVULSION
     Dosage: 50 MG, OM
     Route: 048
     Dates: start: 2005
  8. TOPAMAX [Concomitant]
     Indication: MIGRAINE
     Dosage: 75 MG, HS
     Route: 048
  9. MIRAPEX [Concomitant]
     Indication: RESTLESS LEGS SYNDROME
     Dosage: UNK UNK, UNK
     Route: 048
     Dates: start: 2006
  10. AMBIEN [Concomitant]
     Indication: SLEEP DISORDER
     Dosage: UNK
     Dates: start: 2006
  11. LEVAQUIN [Concomitant]
     Dosage: 750 MG, UNK

REACTIONS (5)
  - Cerebrovascular accident [Unknown]
  - Basal ganglia infarction [Unknown]
  - Pulmonary embolism [Unknown]
  - Hemiparesis [None]
  - Speech disorder [None]
